FAERS Safety Report 10442437 (Version 2)
Quarter: 2014Q4

REPORT INFORMATION
  Report Type: Spontaneous
  Country: US (occurrence: US)
  Receive Date: 20140909
  Receipt Date: 20141015
  Transmission Date: 20150528
  Serious: No
  Sender: FDA-Public Use
  Company Number: US-PFIZER INC-2014248688

PATIENT
  Sex: Female

DRUGS (2)
  1. AMLODIPINE BESILATE [Suspect]
     Active Substance: AMLODIPINE BESYLATE
     Indication: BLOOD PRESSURE ABNORMAL
     Dosage: 2.5 MG, UNK
     Route: 048
     Dates: start: 201401
  2. DIOVAN [Concomitant]
     Active Substance: VALSARTAN
     Indication: BLOOD PRESSURE ABNORMAL
     Dosage: 320 MG, UNK

REACTIONS (4)
  - Malaise [Unknown]
  - Hypertonic bladder [Unknown]
  - Visual impairment [Unknown]
  - Dizziness [Unknown]

NARRATIVE: CASE EVENT DATE: 2014
